FAERS Safety Report 6023593-X (Version None)
Quarter: 2008Q4

REPORT INFORMATION
  Report Type: 
  Country: None (occurrence: None)
  Receive Date: 20081222
  Receipt Date: 20080929
  Transmission Date: 20090506
  Serious: No
  Sender: FDA-Public Use
  Company Number: SPV1-2008-02090

PATIENT
  Age: 6 Year
  Sex: Male
  Weight: 21.8 kg

DRUGS (2)
  1. VYVANSE [Suspect]
     Indication: ATTENTION DEFICIT/HYPERACTIVITY DISORDER
     Dosage: 30 MG, 1X/DAY:QD, ORAL : 20 MG, 1X/DAY:QD, ORAL
     Route: 048
     Dates: start: 20070101, end: 20080601
  2. VYVANSE [Suspect]
     Indication: ATTENTION DEFICIT/HYPERACTIVITY DISORDER
     Dosage: 30 MG, 1X/DAY:QD, ORAL : 20 MG, 1X/DAY:QD, ORAL
     Route: 048
     Dates: start: 20080801

REACTIONS (6)
  - DECREASED APPETITE [None]
  - DRUG EFFECT DECREASED [None]
  - DRUG EFFECT INCREASED [None]
  - FEELING ABNORMAL [None]
  - WEIGHT DECREASED [None]
  - WEIGHT INCREASED [None]
